FAERS Safety Report 5243087-9 (Version None)
Quarter: 2007Q1

REPORT INFORMATION
  Report Type: 
  Country: None (occurrence: None)
  Receive Date: 20070221
  Receipt Date: 20070214
  Transmission Date: 20070707
  Serious: Yes (Other)
  Sender: FDA-Public Use
  Company Number: DE-ROXANE LABORATORIES, INC-2007-BP-02223RO

PATIENT
  Age: 7 Year
  Sex: Male

DRUGS (2)
  1. METHOTREXATE [Suspect]
     Indication: ACUTE LYMPHOCYTIC LEUKAEMIA
     Route: 037
  2. METHOTREXATE [Suspect]
     Route: 048
     Dates: end: 20060101

REACTIONS (10)
  - AREFLEXIA [None]
  - ARTHRALGIA [None]
  - DIPLEGIA [None]
  - DYSURIA [None]
  - LEUKAEMIA RECURRENT [None]
  - NEUROPATHY PERIPHERAL [None]
  - PARAPLEGIA [None]
  - PATHOLOGICAL FRACTURE [None]
  - TOTAL LUNG CAPACITY ABNORMAL [None]
  - WHEELCHAIR USER [None]
